FAERS Safety Report 4725163-X (Version None)
Quarter: 2005Q3

REPORT INFORMATION
  Report Type: 
  Country: None (occurrence: None)
  Receive Date: 20050721
  Receipt Date: 20050615
  Transmission Date: 20060218
  Serious: No
  Sender: FDA-Public Use
  Company Number: 2005SP001436

PATIENT
  Age: 51 Year
  Sex: Female
  Weight: 55.3388 kg

DRUGS (5)
  1. LUNESTA [Suspect]
     Indication: INSOMNIA
     Dates: start: 20050401
  2. LEVOTHYROXINE SODIUM [Concomitant]
  3. FLUOXETINE [Concomitant]
  4. ZYPREXA [Concomitant]
  5. CLONAZEPAM [Concomitant]

REACTIONS (1)
  - DYSGEUSIA [None]
